FAERS Safety Report 5815816-4 (Version None)
Quarter: 2008Q3

REPORT INFORMATION
  Report Type: 
  Country: None (occurrence: None)
  Receive Date: 20080721
  Receipt Date: 20080715
  Transmission Date: 20090109
  Serious: Yes (Death, Hospitalization)
  Sender: FDA-Public Use
  Company Number: FR-JNJFOC-20080703476

PATIENT
  Sex: Male

DRUGS (8)
  1. EPREX [Suspect]
     Indication: ANAEMIA OF MALIGNANT DISEASE
     Route: 065
  2. FENTANYL-100 [Suspect]
     Route: 062
  3. FENTANYL-100 [Suspect]
     Indication: CANCER PAIN
     Route: 062
  4. TAXOTERE [Suspect]
     Indication: NON-SMALL CELL LUNG CANCER
     Route: 042
     Dates: start: 20080101, end: 20080218
  5. SOLUPRED [Suspect]
     Indication: NON-SMALL CELL LUNG CANCER
     Route: 048
  6. TARDYFERON [Suspect]
     Indication: ANAEMIA
     Route: 048
  7. FARLUTAL [Suspect]
     Indication: NON-SMALL CELL LUNG CANCER
     Route: 048
  8. BIPROFENID [Suspect]
     Indication: PAIN
     Route: 048

REACTIONS (2)
  - ACUTE RESPIRATORY FAILURE [None]
  - PULMONARY TOXICITY [None]
